FAERS Safety Report 4555317-7 (Version None)
Quarter: 2004Q4

REPORT INFORMATION
  Report Type: 
  Country: None (occurrence: None)
  Receive Date: 20041227
  Receipt Date: 20040223
  Transmission Date: 20050328
  Serious: Yes (Other)
  Sender: FDA-Public Use
  Company Number: US-JNJFOC-20040101653

PATIENT
  Age: 68 Year
  Sex: Female
  Weight: 70.7611 kg

DRUGS (1)
  1. REOPRO [Suspect]
     Dosage: INTRAVENOUS
     Route: 042
     Dates: start: 20031016

REACTIONS (4)
  - ASTHENIA [None]
  - PALPITATIONS [None]
  - PULMONARY HAEMORRHAGE [None]
  - VERTIGO [None]
